FAERS Safety Report 7829909-3 (Version None)
Quarter: 2011Q4

REPORT INFORMATION
  Report Type: 
  Country: None (occurrence: None)
  Receive Date: 20111021
  Receipt Date: 20110224
  Transmission Date: 20120403
  Serious: No
  Sender: FDA-Public Use
  Company Number: US-BAYER-2010-005012

PATIENT
  Age: 68 Year
  Sex: Female

DRUGS (1)
  1. MAGNEVIST [Suspect]
     Indication: NUCLEAR MAGNETIC RESONANCE IMAGING THORACIC
     Dosage: 15 CC LINE FLUSHED VIA POWER INJECTOR
     Route: 042
     Dates: start: 20101130, end: 20101130

REACTIONS (1)
  - LIP SWELLING [None]
